FAERS Safety Report 4342826-9 (Version None)
Quarter: 2004Q2

REPORT INFORMATION
  Report Type: 
  Country: None (occurrence: None)
  Receive Date: 20040416
  Receipt Date: 20040412
  Transmission Date: 20050107
  Serious: Yes (Hospitalization)
  Sender: FDA-Public Use
  Company Number: 2004208547US

PATIENT
  Age: 69 Year
  Sex: Female

DRUGS (3)
  1. CELEBREX [Suspect]
     Indication: OSTEOARTHRITIS
     Dosage: 200 MG, QD,
     Dates: start: 19980101
  2. RANITIDINE [Concomitant]
  3. ESTRADIOL [Concomitant]

REACTIONS (1)
  - CEREBRAL HAEMORRHAGE [None]
